FAERS Safety Report 12641490 (Version 1)
Quarter: 2016Q3

REPORT INFORMATION
  Report Type: Spontaneous
  Country: IT (occurrence: IT)
  Receive Date: 20160810
  Receipt Date: 20160810
  Transmission Date: 20161109
  Serious: Yes (Hospitalization)
  Sender: FDA-Public Use
  Company Number: IT-ELI_LILLY_AND_COMPANY-IT201608002609

PATIENT
  Age: 71 Year
  Sex: Female
  Weight: 59 kg

DRUGS (17)
  1. ALIMTA [Suspect]
     Active Substance: PEMETREXED DISODIUM
     Indication: LUNG ADENOCARCINOMA
     Dosage: 815 MG, CYCLICAL
     Route: 042
     Dates: start: 20140306, end: 20151126
  2. EMEND [Concomitant]
     Active Substance: APREPITANT
     Dosage: UNK, UNKNOWN
     Route: 065
     Dates: start: 20140306, end: 20150605
  3. XANAX [Concomitant]
     Active Substance: ALPRAZOLAM
     Dosage: UNK, UNKNOWN
     Route: 065
  4. ZOLOFT [Concomitant]
     Active Substance: SERTRALINE HYDROCHLORIDE
     Dosage: UNK, UNKNOWN
     Route: 065
  5. LATANOPROST. [Concomitant]
     Active Substance: LATANOPROST
     Dosage: UNK, UNKNOWN
     Route: 065
  6. ZOLEDRONSAEURE SUN [Concomitant]
     Dosage: UNK, UNKNOWN
     Route: 042
     Dates: start: 20141211, end: 20160222
  7. FLUXUM [Concomitant]
     Active Substance: PARNAPARIN SODIUM
     Dosage: UNK, UNKNOWN
     Route: 065
  8. ZOFRAN [Concomitant]
     Active Substance: ONDANSETRON HYDROCHLORIDE
     Dosage: UNK, UNKNOWN
     Route: 042
     Dates: start: 20140306, end: 20151126
  9. RANITIDINE. [Concomitant]
     Active Substance: RANITIDINE
     Dosage: UNK, UNKNOWN
     Route: 042
     Dates: start: 20140306, end: 20151126
  10. DIBASE [Concomitant]
     Active Substance: CHOLECALCIFEROL
     Dosage: UNK, UNKNOWN
     Route: 065
     Dates: start: 20141211, end: 20160222
  11. DOBETIN                            /00056201/ [Concomitant]
     Active Substance: CYANOCOBALAMIN
     Dosage: UNK, UNKNOWN
     Route: 065
  12. CISPLATIN ACCORD HEALTHCARE [Concomitant]
     Active Substance: CISPLATIN
     Dosage: UNK, UNKNOWN
     Route: 065
     Dates: start: 20140306, end: 20140327
  13. FOLINGRAV [Concomitant]
     Dosage: UNK, UNKNOWN
     Route: 065
  14. SOLDESAM [Concomitant]
     Active Substance: DEXAMETHASONE
     Dosage: UNK, UNKNOWN
     Route: 042
     Dates: start: 20140306, end: 20151126
  15. AZOPT [Concomitant]
     Active Substance: BRINZOLAMIDE
     Dosage: UNK, UNKNOWN
     Route: 065
  16. PANTOPRAZOLE [Concomitant]
     Active Substance: PANTOPRAZOLE SODIUM
     Dosage: UNK, UNKNOWN
     Route: 048
  17. CISPLATIN SANDOZ [Concomitant]
     Active Substance: CISPLATIN
     Dosage: UNK, UNKNOWN
     Route: 065
     Dates: start: 20140417, end: 20140626

REACTIONS (4)
  - Tachycardia [Recovered/Resolved with Sequelae]
  - Anaemia [Recovered/Resolved with Sequelae]
  - Dyspnoea exertional [Recovered/Resolved with Sequelae]
  - Blood creatinine increased [Unknown]

NARRATIVE: CASE EVENT DATE: 20151210
